FAERS Safety Report 7908899-9 (Version None)
Quarter: 2011Q4

REPORT INFORMATION
  Report Type: 
  Country: None (occurrence: None)
  Receive Date: 20111111
  Receipt Date: 20111103
  Transmission Date: 20120403
  Serious: Yes (Other)
  Sender: FDA-Public Use
  Company Number: GB-BRISTOL-MYERS SQUIBB COMPANY-16143471

PATIENT
  Age: 62 Year
  Sex: Female

DRUGS (4)
  1. LIPITOR [Suspect]
     Indication: HYPERCHOLESTEROLAEMIA
     Route: 048
     Dates: start: 20110927, end: 20111004
  2. LOVASTATIN [Suspect]
  3. ENALAPRIL MALEATE [Concomitant]
     Indication: HYPERTENSION
     Route: 048
     Dates: start: 20110608, end: 20111101
  4. PRAVASTATIN SODIUM [Suspect]
     Dosage: 1 DF = 10MG, IN JUL, 1 OR 2 TABS AT NIGHT 01AUG11-14SEP11;20MG ONE TAB AT NIGHT
     Dates: start: 20110701, end: 20110914

REACTIONS (3)
  - GENERALISED ERYTHEMA [None]
  - ERYTHEMA [None]
  - PARAESTHESIA ORAL [None]
